FAERS Safety Report 18304130 (Version 2)
Quarter: 2020Q4

REPORT INFORMATION
  Report Type: Report from Study
  Country: BR (occurrence: BR)
  Receive Date: 20200923
  Receipt Date: 20201015
  Transmission Date: 20210113
  Serious: Yes (Hospitalization, Other)
  Sender: FDA-Public Use
  Company Number: BR-BRISTOL-MYERS SQUIBB COMPANY-BMS-2020-076954

PATIENT
  Age: 80 Year
  Sex: Female

DRUGS (1)
  1. ABATACEPT [Suspect]
     Active Substance: ABATACEPT
     Indication: RHEUMATOID ARTHRITIS
     Dosage: TAKING FOR 2 YEARS, 3 VIALS OF 250 MG, EVERY MONTH
     Route: 065
     Dates: end: 202005

REACTIONS (1)
  - Cerebral amyloid angiopathy [Unknown]

NARRATIVE: CASE EVENT DATE: 202006
